FAERS Safety Report 5554755-3 (Version None)
Quarter: 2007Q4

REPORT INFORMATION
  Report Type: 
  Country: None (occurrence: None)
  Receive Date: 20071213
  Receipt Date: 20071204
  Transmission Date: 20080405
  Serious: Yes (Death, Other)
  Sender: FDA-Public Use
  Company Number: JP-JNJFOC-20071201190

PATIENT
  Age: 70 Year
  Sex: Female

DRUGS (11)
  1. DUROTEP [Suspect]
     Indication: CANCER PAIN
     Route: 062
  2. MEDICON [Concomitant]
     Route: 048
  3. MUCOSOLVAN [Concomitant]
     Route: 048
  4. MEDROL [Concomitant]
     Route: 048
  5. OMEPRAZOLE [Concomitant]
     Route: 048
  6. HYPEN [Concomitant]
     Route: 048
  7. PRIMPERAN INJ [Concomitant]
     Route: 048
  8. MAGLAX [Concomitant]
     Route: 048
  9. PAXIL [Concomitant]
     Route: 048
  10. OPSO [Concomitant]
     Route: 048
  11. GABAPENTIN [Concomitant]
     Route: 048

REACTIONS (2)
  - DISEASE PROGRESSION [None]
  - GENERALISED ERYTHEMA [None]
